FAERS Safety Report 25480465 (Version 1)
Quarter: 2025Q2

REPORT INFORMATION
  Report Type: Spontaneous
  Country: EG (occurrence: EG)
  Receive Date: 20250625
  Receipt Date: 20250625
  Transmission Date: 20250716
  Serious: Yes (Other)
  Sender: INSUD PHARMA
  Company Number: EG-INSUD PHARMA-2506EG05011

PATIENT

DRUGS (1)
  1. MEDROXYPROGESTERONE ACETATE [Suspect]
     Active Substance: MEDROXYPROGESTERONE ACETATE
     Indication: Contraception
     Route: 030

REACTIONS (4)
  - Uterine haemorrhage [Recovered/Resolved]
  - Hypomenorrhoea [Recovered/Resolved]
  - Abdominal pain lower [Recovered/Resolved]
  - Abdominal discomfort [Recovered/Resolved]
